FAERS Safety Report 6306196-9 (Version None)
Quarter: 2009Q3

REPORT INFORMATION
  Report Type: 
  Country: None (occurrence: None)
  Receive Date: 20090812
  Receipt Date: 20090806
  Transmission Date: 20100115
  Serious: Yes (Other)
  Sender: FDA-Public Use
  Company Number: US-BAYER-200912782BCC

PATIENT
  Age: 23 Year
  Sex: Female
  Weight: 67 kg

DRUGS (2)
  1. MIDOL [Suspect]
     Indication: BACK PAIN
     Dosage: TOTAL DAILY DOSE: 1 DF
     Route: 048
     Dates: start: 20090806
  2. TYLENOL MAXIMUM STRENGTH [Concomitant]
     Route: 065
     Dates: start: 20090805, end: 20090805

REACTIONS (6)
  - DISCOMFORT [None]
  - EUPHORIC MOOD [None]
  - MIOSIS [None]
  - MYDRIASIS [None]
  - SLUGGISHNESS [None]
  - SOMNOLENCE [None]
